FAERS Safety Report 16057153 (Version 2)
Quarter: 2019Q2

REPORT INFORMATION
  Report Type: Spontaneous
  Country: GR (occurrence: GR)
  Receive Date: 20190311
  Receipt Date: 20190411
  Transmission Date: 20190711
  Serious: Yes (Death, Other)
  Sender: FDA-Public Use
  Company Number: GR-PFIZER INC-2019106443

PATIENT
  Age: 83 Year
  Sex: Female

DRUGS (2)
  1. PIPERACILLIN/TAZOBACTAM [Suspect]
     Active Substance: PIPERACILLIN SODIUM\TAZOBACTAM SODIUM
     Indication: INFECTION
     Dosage: UNK
     Route: 042
  2. DAPTOMYCIN. [Suspect]
     Active Substance: DAPTOMYCIN
     Indication: INFECTION
     Dosage: UNK
     Route: 042

REACTIONS (2)
  - Haemodynamic instability [Fatal]
  - Multiple organ dysfunction syndrome [Fatal]
